FAERS Safety Report 24915015 (Version 4)
Quarter: 2025Q2

REPORT INFORMATION
  Report Type: Report from Study
  Country: US (occurrence: US)
  Receive Date: 20250203
  Receipt Date: 20250404
  Transmission Date: 20250717
  Serious: Yes (Hospitalization, Other)
  Sender: NOVARTIS
  Company Number: US-002147023-NVSC2025US016079

PATIENT
  Sex: Male

DRUGS (1)
  1. KESIMPTA [Suspect]
     Active Substance: OFATUMUMAB
     Indication: Multiple sclerosis
     Dosage: 20 MG, QMO
     Route: 058

REACTIONS (9)
  - Pneumonia [Unknown]
  - Cough [Unknown]
  - Progressive multiple sclerosis [Unknown]
  - Dementia [Unknown]
  - Fall [Unknown]
  - Dysstasia [Unknown]
  - Traumatic torticollis [Unknown]
  - Lung disorder [Unknown]
  - Blood test abnormal [Unknown]
